FAERS Safety Report 10376019 (Version 2)
Quarter: 2015Q3

REPORT INFORMATION
  Report Type: Report from Study
  Country: CA (occurrence: CA)
  Receive Date: 20140811
  Receipt Date: 20150721
  Transmission Date: 20151125
  Serious: Yes (Hospitalization, Other)
  Sender: FDA-Public Use
  Company Number: CA-BRISTOL-MYERS SQUIBB COMPANY-21260666

PATIENT
  Age: 55 Year
  Sex: Male

DRUGS (1)
  1. DASATINIB [Suspect]
     Active Substance: DASATINIB
     Indication: CHRONIC MYELOID LEUKAEMIA
     Dosage: 70 MG, QD
     Route: 048
     Dates: start: 20070310

REACTIONS (7)
  - Dyspnoea [Unknown]
  - Viral infection [Unknown]
  - Pneumonia [Unknown]
  - Decreased appetite [Unknown]
  - Fluid retention [Unknown]
  - Pyrexia [Unknown]
  - Throat irritation [Unknown]

NARRATIVE: CASE EVENT DATE: 201405
